FAERS Safety Report 5735937-4 (Version None)
Quarter: 2008Q2

REPORT INFORMATION
  Report Type: 
  Country: None (occurrence: None)
  Receive Date: 20080509
  Receipt Date: 20080422
  Transmission Date: 20081010
  Serious: Yes (Other)
  Sender: FDA-Public Use
  Company Number: 2008S1006929

PATIENT
  Age: 15 Year
  Sex: Male

DRUGS (3)
  1. AMNESTEEM [Suspect]
     Indication: ACNE
     Dosage: 40 MG;DAILY;ORAL
     Route: 048
     Dates: end: 20080203
  2. AMNESTEEM [Suspect]
     Indication: ACNE
     Dosage: 20 MG;EVERY OTHER DAY; ORAL
     Route: 048
     Dates: end: 20080203
  3. STRATTERA [Suspect]
     Indication: ATTENTION DEFICIT/HYPERACTIVITY DISORDER
     Dosage: ORAL
     Route: 048

REACTIONS (2)
  - ABNORMAL DREAMS [None]
  - SUICIDAL IDEATION [None]
